FAERS Safety Report 7243134-9 (Version None)
Quarter: 2011Q1

REPORT INFORMATION
  Report Type: 
  Country: None (occurrence: None)
  Receive Date: 20110125
  Receipt Date: 20110118
  Transmission Date: 20110831
  Serious: Yes (Other)
  Sender: FDA-Public Use
  Company Number: US-PFIZER INC-2011012211

PATIENT
  Sex: Male

DRUGS (2)
  1. NEURONTIN [Suspect]
     Indication: MUSCULOSKELETAL PAIN
     Dosage: 0.6 MG, 3X/DAY
     Route: 048
     Dates: start: 20100101
  2. OXYCODONE [Concomitant]
     Indication: PROCEDURAL PAIN
     Dosage: UNK
     Route: 048

REACTIONS (3)
  - FLATULENCE [None]
  - SOMNOLENCE [None]
  - FLUID RETENTION [None]
